FAERS Safety Report 4584603-X (Version None)
Quarter: 2005Q1

REPORT INFORMATION
  Report Type: 
  Country: None (occurrence: None)
  Receive Date: 20050216
  Receipt Date: 20041015
  Transmission Date: 20050727
  Serious: Yes (Hospitalization)
  Sender: FDA-Public Use
  Company Number: DE-MERCK-0410DEU00534

PATIENT
  Age: 59 Year
  Sex: Male
  Weight: 91 kg

DRUGS (2)
  1. VIOXX [Suspect]
     Indication: ARTHROPATHY
     Route: 048
     Dates: start: 20020101, end: 20040101
  2. ASPIRIN [Concomitant]
     Route: 065

REACTIONS (14)
  - ARTHROPATHY [None]
  - CARDIOVASCULAR DISORDER [None]
  - COLONIC POLYP [None]
  - DIZZINESS [None]
  - GASTRITIS [None]
  - HAEMORRHOIDS [None]
  - INTESTINAL HAEMORRHAGE [None]
  - JOINT EFFUSION [None]
  - PALPITATIONS [None]
  - POLYNEUROPATHY IDIOPATHIC PROGRESSIVE [None]
  - RECTAL PROLAPSE [None]
  - REFLUX OESOPHAGITIS [None]
  - TACHYCARDIA [None]
  - TENDONITIS [None]
